FAERS Safety Report 15025254 (Version 2)
Quarter: 2018Q3

REPORT INFORMATION
  Report Type: Report from Study
  Country: CO (occurrence: CO)
  Receive Date: 20180618
  Receipt Date: 20180914
  Transmission Date: 20181010
  Serious: Yes (Hospitalization, Other)
  Sender: FDA-Public Use
  Company Number: CO-ACTELION-A-US2018-174072

PATIENT
  Age: 50 Year
  Sex: Female

DRUGS (8)
  1. COUMADIN [Concomitant]
     Active Substance: WARFARIN SODIUM
  2. SPIRONOLACTONE. [Concomitant]
     Active Substance: SPIRONOLACTONE
  3. NEBIVOLOL. [Concomitant]
     Active Substance: NEBIVOLOL
  4. MACITENTAN [Concomitant]
     Active Substance: MACITENTAN
  5. SILDENAFIL. [Concomitant]
     Active Substance: SILDENAFIL
  6. AMIODARONE [Concomitant]
     Active Substance: AMIODARONE
  7. OXYGEN. [Concomitant]
     Active Substance: OXYGEN
  8. VENTAVIS [Suspect]
     Active Substance: ILOPROST
     Indication: PULMONARY ARTERIAL HYPERTENSION
     Dosage: 6 DF, UNK
     Route: 055
     Dates: start: 20090901

REACTIONS (3)
  - Hospitalisation [Recovering/Resolving]
  - Oxygen saturation decreased [Recovering/Resolving]
  - Catheterisation cardiac [Recovering/Resolving]

NARRATIVE: CASE EVENT DATE: 20180606
